FAERS Safety Report 5087258-3 (Version None)
Quarter: 2006Q3

REPORT INFORMATION
  Report Type: 
  Country: None (occurrence: None)
  Receive Date: 20060824
  Receipt Date: 20060816
  Transmission Date: 20061208
  Serious: Yes (Other)
  Sender: FDA-Public Use
  Company Number: PHEH2006US10556

PATIENT
  Age: 62 Year
  Sex: Male
  Weight: 83.446 kg

DRUGS (1)
  1. DIOVAN HCT [Suspect]
     Indication: HYPERTENSION
     Dosage: 320MG VAL/25MG HCT, QD
     Route: 048
     Dates: start: 20040401, end: 20060817

REACTIONS (1)
  - ATRIAL FIBRILLATION [None]
